FAERS Safety Report 10067500 (Version 4)
Quarter: 2014Q2

REPORT INFORMATION
  Report Type: Spontaneous
  Country: JP (occurrence: None)
  Receive Date: 20140407
  Receipt Date: 20140506
  Transmission Date: 20141212
  Serious: Yes (Hospitalization)
  Sender: FDA-Public Use
  Company Number: 2014JP003119

PATIENT
  Age: 47 Year
  Sex: Female
  Weight: 60 kg

DRUGS (5)
  1. PONATINIB [Suspect]
     Indication: CHRONIC MYELOID LEUKAEMIA
     Route: 048
     Dates: start: 20130708, end: 20131112
  2. ISODINE (POVIDONE-IODINE) [Concomitant]
  3. PURSENNID (SENNOSIDE A+B CALCIUM) [Concomitant]
  4. LOXONIN (LOXOPROFEN SODIUM) [Concomitant]
  5. BISOPROLOL FUMARATE (BISOPROLOL FUMARATE) [Concomitant]

REACTIONS (2)
  - Genital haemorrhage [None]
  - Menstruation irregular [None]
